FAERS Safety Report 17961882 (Version 2)
Quarter: 2020Q4

REPORT INFORMATION
  Report Type: Spontaneous
  Country: US (occurrence: US)
  Receive Date: 20200630
  Receipt Date: 20201230
  Transmission Date: 20210113
  Serious: No
  Sender: FDA-Public Use
  Company Number: US-INDIVIOR US-INDV-124364-2020

PATIENT
  Age: 50 Year
  Sex: Male

DRUGS (9)
  1. LORAZEPAM. [Concomitant]
     Active Substance: LORAZEPAM
     Indication: DRUG USE DISORDER
     Dosage: UNK (TO TAPER OFF BUP)
     Route: 065
  2. BUPRENORPHINE. [Suspect]
     Active Substance: BUPRENORPHINE
     Dosage: 4 MG, UNK (REMAINED ON 4 MG)
     Route: 060
  3. BUPRENORPHINE TRANSDERMAL SYSTEM [Concomitant]
     Active Substance: BUPRENORPHINE
     Indication: DRUG USE DISORDER
     Dosage: UNK (TO TAPER OFF BUP)
     Route: 065
  4. BUPRENORPHINE. [Suspect]
     Active Substance: BUPRENORPHINE
     Indication: DRUG USE DISORDER
     Dosage: 8 MG, QD (WHILE ON INDUCTION)
     Route: 060
  5. ADDERALL [Concomitant]
     Active Substance: AMPHETAMINE ASPARTATE\AMPHETAMINE SULFATE\DEXTROAMPHETAMINE SACCHARATE\DEXTROAMPHETAMINE SULFATE
     Indication: ATTENTION DEFICIT HYPERACTIVITY DISORDER
     Dosage: 15 MILLIGRAM, QD
     Route: 065
     Dates: start: 20180307
  6. SUBLOCADE [Suspect]
     Active Substance: BUPRENORPHINE
     Indication: DRUG USE DISORDER
     Dosage: 100 MILLIGRAM, ONE TIME DOSE
     Route: 058
     Dates: start: 20190214
  7. TRAMADOL. [Concomitant]
     Active Substance: TRAMADOL
     Indication: DRUG USE DISORDER
     Dosage: UNK (TO TAPER OFF BUP )
     Route: 065
  8. BUPRENORPHINE. [Suspect]
     Active Substance: BUPRENORPHINE
     Dosage: TAPERED BELOW 2 MG, UNK
     Route: 060
  9. CLONIDINE. [Concomitant]
     Active Substance: CLONIDINE
     Indication: DRUG USE DISORDER
     Dosage: UNK (TO TAPER OFF BUP)
     Route: 065

REACTIONS (3)
  - Drug withdrawal syndrome [Recovered/Resolved]
  - Malaise [Recovered/Resolved]
  - Irritability [Recovered/Resolved]

NARRATIVE: CASE EVENT DATE: 20190224
